FAERS Safety Report 5621763-3 (Version None)
Quarter: 2008Q1

REPORT INFORMATION
  Report Type: 
  Country: None (occurrence: None)
  Receive Date: 20080211
  Receipt Date: 20080201
  Transmission Date: 20080703
  Serious: Yes (Hospitalization)
  Sender: FDA-Public Use
  Company Number: PHBS2008CH01618

PATIENT
  Age: 70 Year
  Sex: Female

DRUGS (6)
  1. DIOVAN HCT [Suspect]
     Indication: HYPERTENSION
     Dosage: VALS 160 / HCT 12.5 MG/DAY
     Dates: end: 20070829
  2. GLUCOPHAGE [Concomitant]
     Dosage: 1700 MG/DAY
  3. DIAMICRON [Concomitant]
     Dosage: 160 MG/DAY
  4. ZOCOR [Concomitant]
     Dosage: 80 MG/DAY
  5. ELTROXIN [Concomitant]
     Indication: HYPOTHYROIDISM
     Dosage: 0.1 MG/DAY
  6. TEMESTA [Concomitant]
     Dosage: 1 DF/D
     Dates: start: 20070828, end: 20070829

REACTIONS (7)
  - BLOOD OSMOLARITY DECREASED [None]
  - FALL [None]
  - HYPONATRAEMIA [None]
  - HYPOVOLAEMIA [None]
  - URINARY TRACT INFECTION [None]
  - URINE OSMOLARITY DECREASED [None]
  - URINE SODIUM DECREASED [None]
